FAERS Safety Report 8289966 (Version 3)
Quarter: 2014Q1

REPORT INFORMATION
  Report Type: Spontaneous
  Country: US (occurrence: None)
  Receive Date: 20111122
  Receipt Date: 20130107
  Transmission Date: 20141002
  Serious: No
  Sender: FDA-Public Use
  Company Number: PHHY2011US63834

PATIENT
  Age: 54 Year
  Sex: Male
  Weight: 77.1 kg

DRUGS (9)
  1. GILENYA [Suspect]
     Indication: MULTIPLE SCLEROSIS
     Route: 048
     Dates: start: 20110406
  2. TIZANIDINE (TIZANIDINE) TABLET [Concomitant]
  3. KLONOPIN (CLONAZEPAM) (TABLETS) [Concomitant]
  4. SIMVASTATIN (SIMVASTATIN) TABLET [Concomitant]
  5. ASA + CAFFEINE + BUTALBITAL (ACETYLSALICYLIC ACID, BUTALBITAL, CAFFEINE) TABLET [Concomitant]
  6. DEPAKOTE (VALPROATE SEMISODIUM) CAPSULE [Concomitant]
  7. MULTIVITAMINS (ASCORBIC ACID, ERGOCALCIFEROL, FOLIC ACID, NICOTINAMIDE, PANTHENOL, RETINOL, RIBOFLAVIN, THIAMINE HYDROCHLORIDE) CAPSULE [Concomitant]
  8. FISH OIL (FISH OIL) CAPSULE [Concomitant]
  9. IRON (IRON) TABLET [Concomitant]

REACTIONS (6)
  - Arthralgia [None]
  - Arthritis [None]
  - Viral infection [None]
  - Influenza like illness [None]
  - Pyrexia [None]
  - Chills [None]
